FAERS Safety Report 13083957 (Version 1)
Quarter: 2017Q1

REPORT INFORMATION
  Report Type: Spontaneous
  Country: US (occurrence: US)
  Receive Date: 20170104
  Receipt Date: 20170104
  Transmission Date: 20170428
  Serious: No
  Sender: FDA-Public Use
  Company Number: US-BAYER-2017-001127

PATIENT
  Sex: Female
  Weight: 43 kg

DRUGS (2)
  1. CLARITIN [Suspect]
     Active Substance: LORATADINE
     Indication: RHINORRHOEA
  2. CLARITIN [Suspect]
     Active Substance: LORATADINE
     Indication: SECRETION DISCHARGE
     Dosage: 1 DF, UNK
     Route: 048
     Dates: start: 20170102

REACTIONS (3)
  - Feeling abnormal [Unknown]
  - Off label use [Unknown]
  - Therapeutic response unexpected [Unknown]
